FAERS Safety Report 21550039 (Version 1)
Quarter: 2022Q4

REPORT INFORMATION
  Report Type: Spontaneous
  Country: IT (occurrence: IT)
  Receive Date: 20221103
  Receipt Date: 20221103
  Transmission Date: 20230112
  Serious: Yes (Other)
  Sender: FDA-Public Use
  Company Number: IT-MYLANLABS-2022M1120662

PATIENT
  Age: 40 Month
  Sex: Female

DRUGS (1)
  1. PREDNISONE [Suspect]
     Active Substance: PREDNISONE
     Indication: Aicardi-Goutieres syndrome
     Dosage: 2 MILLIGRAM/KILOGRAM (2 MG/KG FOR A WEEK, FOLLOWED BY WEANING OVER 1 MONTH)
     Route: 065

REACTIONS (1)
  - Drug ineffective [Unknown]
